FAERS Safety Report 8310016-0 (Version None)
Quarter: 2012Q1

REPORT INFORMATION
  Report Type: 
  Country: None (occurrence: None)
  Receive Date: 20120315
  Receipt Date: 20110331
  Transmission Date: 20120608
  Serious: No
  Sender: FDA-Public Use
  Company Number: PHHY2011US17581

PATIENT
  Age: 44 Year
  Sex: Female

DRUGS (3)
  1. INSULIN (INSULIN) [Concomitant]
  2. GLUCOPHAGE [Concomitant]
  3. GILENYA [Suspect]
     Indication: MULTIPLE SCLEROSIS
     Dosage: 0.5 M, QD, ORAL
     Route: 048
     Dates: start: 20110301, end: 20110311

REACTIONS (6)
  - DRY MOUTH [None]
  - FLUSHING [None]
  - SLEEP DISORDER [None]
  - HEADACHE [None]
  - COLD SWEAT [None]
  - FATIGUE [None]
